FAERS Safety Report 10261845 (Version 1)
Quarter: 2014Q2

REPORT INFORMATION
  Report Type: Spontaneous
  Country: US (occurrence: None)
  Receive Date: 20140624
  Receipt Date: 20140624
  Transmission Date: 20141212
  Serious: Yes (Hospitalization)
  Sender: FDA-Public Use
  Company Number: None

PATIENT
  Age: 78 Year
  Sex: Female

DRUGS (1)
  1. CAPECITABINE 150 MG TEVA [Suspect]
     Indication: BLADDER NEOPLASM
     Route: 048
     Dates: start: 20140527, end: 20140530

REACTIONS (2)
  - Asthenia [None]
  - Ill-defined disorder [None]
